FAERS Safety Report 5505327-8 (Version None)
Quarter: 2007Q4

REPORT INFORMATION
  Report Type: 
  Country: None (occurrence: None)
  Receive Date: 20071102
  Receipt Date: 20071031
  Transmission Date: 20080405
  Serious: Yes (Hospitalization)
  Sender: FDA-Public Use
  Company Number: B0493623A

PATIENT
  Age: 62 Year
  Sex: Female

DRUGS (3)
  1. ALKERAN [Suspect]
     Dosage: 150MG PER DAY
     Route: 048
     Dates: start: 20070828, end: 20070901
  2. BORTEZOMIB [Concomitant]
     Dosage: 2.5MG PER DAY
     Route: 042
     Dates: start: 20070808, end: 20070830
  3. ZOLEDRONIC ACID [Concomitant]
     Route: 042

REACTIONS (6)
  - ECCHYMOSIS [None]
  - ILEUS [None]
  - MUSCLE ATROPHY [None]
  - NEUROPATHY PERIPHERAL [None]
  - PARAESTHESIA [None]
  - PETECHIAE [None]
